FAERS Safety Report 10235603 (Version 1)
Quarter: 2014Q2

REPORT INFORMATION
  Report Type: Spontaneous
  Country: AR (occurrence: AR)
  Receive Date: 20140613
  Receipt Date: 20140613
  Transmission Date: 20141212
  Serious: Yes (Other)
  Sender: FDA-Public Use
  Company Number: AR-SA-2014SA075214

PATIENT
  Age: 10 Month
  Sex: Male

DRUGS (3)
  1. MYOZYME [Suspect]
     Indication: GLYCOGEN STORAGE DISEASE TYPE II
     Route: 042
     Dates: start: 2013
  2. DIPHENHYDRAMINE [Concomitant]
     Indication: PREMEDICATION
  3. DIPYRONE [Concomitant]
     Indication: PREMEDICATION

REACTIONS (8)
  - Hypothermia [Recovered/Resolved]
  - Pneumonia [Unknown]
  - Myoclonus [Recovered/Resolved]
  - Catarrh [Recovered/Resolved]
  - Cyanosis [Recovered/Resolved]
  - Pyrexia [Recovered/Resolved]
  - Dyspnoea [Unknown]
  - Bronchospasm [Unknown]
